FAERS Safety Report 10067089 (Version 1)
Quarter: 2014Q2

REPORT INFORMATION
  Report Type: Spontaneous
  Country: US (occurrence: US)
  Receive Date: 20140409
  Receipt Date: 20140409
  Transmission Date: 20141212
  Serious: No
  Sender: FDA-Public Use
  Company Number: US-009507513-1403USA011958

PATIENT
  Age: 22 Year
  Sex: Female
  Weight: 84.35 kg

DRUGS (2)
  1. NEXPLANON [Suspect]
     Indication: CONTRACEPTION
     Dosage: UNK
     Route: 059
     Dates: start: 20140317
  2. IBUPROFEN [Concomitant]

REACTIONS (4)
  - Implant site vesicles [Not Recovered/Not Resolved]
  - Implant site rash [Not Recovered/Not Resolved]
  - Implant site pain [Not Recovered/Not Resolved]
  - Implant site swelling [Not Recovered/Not Resolved]
